FAERS Safety Report 6140687-9 (Version None)
Quarter: 2009Q1

REPORT INFORMATION
  Report Type: 
  Country: None (occurrence: None)
  Receive Date: 20090331
  Receipt Date: 20090316
  Transmission Date: 20090719
  Serious: Yes (Death)
  Sender: FDA-Public Use
  Company Number: 2009000793

PATIENT
  Age: 74 Year
  Sex: Female

DRUGS (1)
  1. ERLOTINIB / PLACEBO(ERLOTINIB HCL) (TABLET) (ERLOTINIB HCL) [Suspect]
     Indication: LUNG NEOPLASM MALIGNANT
     Dosage: (150 MG,QD), ORAL
     Route: 048
     Dates: start: 20090211

REACTIONS (1)
  - DEATH [None]
